FAERS Safety Report 4717098-3 (Version None)
Quarter: 2005Q3

REPORT INFORMATION
  Report Type: 
  Country: None (occurrence: None)
  Receive Date: 20050715
  Receipt Date: 20050426
  Transmission Date: 20060218
  Serious: Yes (Hospitalization)
  Sender: FDA-Public Use
  Company Number: 11020

PATIENT
  Age: 13 Year
  Sex: Female

DRUGS (4)
  1. METHOTREXATE [Suspect]
     Indication: RHEUMATOID ARTHRITIS
     Dosage: 20 MG WEEKLY
     Route: 058
     Dates: start: 19941201
  2. ETANERCEPT [Suspect]
     Indication: RHEUMATOID ARTHRITIS
     Dosage: 12.5 MG 2/WK
     Route: 058
     Dates: start: 20021213
  3. NAPROXEN [Concomitant]
  4. FOLIC ACID [Concomitant]

REACTIONS (1)
  - ARTHRODESIS [None]
